FAERS Safety Report 8284767-0 (Version None)
Quarter: 2012Q2

REPORT INFORMATION
  Report Type: 
  Country: None (occurrence: None)
  Receive Date: 20120413
  Receipt Date: 20110711
  Transmission Date: 20120825
  Serious: Yes (Hospitalization, Other)
  Sender: FDA-Public Use
  Company Number: US-ASTRAZENECA-2011SE41546

PATIENT
  Age: 58 Year
  Sex: Female

DRUGS (1)
  1. NEXIUM [Suspect]
     Dosage: DAILY
     Route: 048
     Dates: start: 20010101

REACTIONS (2)
  - OSTEOPOROSIS [None]
  - SPINAL FRACTURE [None]
